FAERS Safety Report 4640980-2 (Version None)
Quarter: 2005Q2

REPORT INFORMATION
  Report Type: 
  Country: None (occurrence: None)
  Receive Date: 20050421
  Receipt Date: 20050407
  Transmission Date: 20051028
  Serious: Yes (Hospitalization)
  Sender: FDA-Public Use
  Company Number: NL-BOEHRINGER INGELHEIM PHARMACEUTICALS, INC.-2005-DE-01336GD

PATIENT
  Age: 5 Month

DRUGS (1)
  1. MEXILETINE HCL [Suspect]
     Indication: VENTRICULAR ARRHYTHMIA

REACTIONS (3)
  - CONDITION AGGRAVATED [None]
  - DRUG INEFFECTIVE [None]
  - TORSADE DE POINTES [None]
